FAERS Safety Report 7192558-7 (Version None)
Quarter: 2010Q4

REPORT INFORMATION
  Report Type: 
  Country: None (occurrence: None)
  Receive Date: 20101223
  Receipt Date: 20101001
  Transmission Date: 20110411
  Serious: No
  Sender: FDA-Public Use
  Company Number: US-BAYER-201022102BCC

PATIENT
  Sex: Male
  Weight: 80.909 kg

DRUGS (6)
  1. ALEVE [Suspect]
     Indication: ARTHRALGIA
     Dosage: UNK, HS
     Route: 048
  2. EFFERVESCENT POTASSIUM CHLOR [Concomitant]
  3. LIPITOR [Concomitant]
     Dosage: 20 MG, UNK
  4. HYDROCHLOROTHIAZIDE [Concomitant]
     Dosage: 25 MG, UNK
  5. AMLODIPINE [Concomitant]
     Dosage: 10 MG, UNK
  6. LISINOPRIL [Concomitant]
     Dosage: 10 MG, UNK

REACTIONS (2)
  - DIZZINESS [None]
  - HEART RATE DECREASED [None]
